FAERS Safety Report 7477595-7 (Version None)
Quarter: 2011Q2

REPORT INFORMATION
  Report Type: 
  Country: None (occurrence: None)
  Receive Date: 20110505
  Receipt Date: 20110425
  Transmission Date: 20111010
  Serious: Yes (Other)
  Sender: FDA-Public Use
  Company Number: TRP_07698_2011

PATIENT
  Sex: Male

DRUGS (3)
  1. MARIJUANA [Concomitant]
  2. RIBASPHERE [Suspect]
     Indication: HEPATITIS C
     Dates: start: 20110329
  3. PEG-INTRON [Suspect]
     Indication: HEPATITIS C
     Dates: start: 20110329

REACTIONS (11)
  - THIRST [None]
  - BLOOD PRESSURE INCREASED [None]
  - FEELING ABNORMAL [None]
  - EXTRASYSTOLES [None]
  - NAUSEA [None]
  - ANXIETY [None]
  - HEAD DISCOMFORT [None]
  - HOT FLUSH [None]
  - SUICIDAL IDEATION [None]
  - DRY MOUTH [None]
  - DYSGEUSIA [None]
